FAERS Safety Report 16432441 (Version 18)
Quarter: 2020Q3

REPORT INFORMATION
  Report Type: Report from Study
  Country: US (occurrence: US)
  Receive Date: 20190614
  Receipt Date: 20200824
  Transmission Date: 20201102
  Serious: Yes (Hospitalization, Other)
  Sender: FDA-Public Use
  Company Number: US-ACTELION-A-NJ2019-186963

PATIENT
  Age: 47 Year
  Sex: Male
  Weight: 85.71 kg

DRUGS (26)
  1. VELETRI [Suspect]
     Active Substance: EPOPROSTENOL
     Dosage: 50 NG/KG, PER MIN
     Route: 042
  2. ADEMPAS [Concomitant]
     Active Substance: RIOCIGUAT
  3. ATIVAN [Concomitant]
     Active Substance: LORAZEPAM
     Dosage: UNK
  4. VELETRI [Suspect]
     Active Substance: EPOPROSTENOL
     Dosage: 43 NG/KG, PER MIN
     Route: 042
  5. VELETRI [Suspect]
     Active Substance: EPOPROSTENOL
     Dosage: 35 NG/KG, PER MIN
     Route: 042
  6. PROTONIX [Concomitant]
     Active Substance: PANTOPRAZOLE SODIUM
     Dosage: UNK
  7. AMIODARONE [Concomitant]
     Active Substance: AMIODARONE
  8. MARINOL [Concomitant]
     Active Substance: DRONABINOL
  9. AMBIEN [Concomitant]
     Active Substance: ZOLPIDEM TARTRATE
  10. MORPHINE [Suspect]
     Active Substance: MORPHINE
     Indication: PAIN
     Dosage: UNK
     Route: 065
  11. EFFEXOR [Concomitant]
     Active Substance: VENLAFAXINE HYDROCHLORIDE
     Dosage: UNK
  12. K?DUR [Concomitant]
     Active Substance: POTASSIUM CHLORIDE
  13. BUMEX [Concomitant]
     Active Substance: BUMETANIDE
     Dosage: UNK
  14. REGLAN [Concomitant]
     Active Substance: METOCLOPRAMIDE HYDROCHLORIDE
  15. VELETRI [Suspect]
     Active Substance: EPOPROSTENOL
     Indication: PULMONARY ARTERIAL HYPERTENSION
     Dosage: 45 NG/KG, PER MIN
     Route: 042
  16. VELETRI [Suspect]
     Active Substance: EPOPROSTENOL
     Dosage: 24 NG/KG, PER MIN
     Route: 042
  17. LETAIRIS [Concomitant]
     Active Substance: AMBRISENTAN
  18. SYMBICORT [Concomitant]
     Active Substance: BUDESONIDE\FORMOTEROL FUMARATE DIHYDRATE
  19. NEURONTIN [Concomitant]
     Active Substance: GABAPENTIN
     Dosage: UNK
  20. SPIRIVA [Concomitant]
     Active Substance: TIOTROPIUM BROMIDE MONOHYDRATE
     Dosage: UNK
  21. VELETRI [Suspect]
     Active Substance: EPOPROSTENOL
     Dosage: 14 NG/KG, PER MIN
     Route: 042
  22. UPTRAVI [Concomitant]
     Active Substance: SELEXIPAG
     Route: 048
  23. WARFARIN [Concomitant]
     Active Substance: WARFARIN
  24. IMODIUM [Concomitant]
     Active Substance: LOPERAMIDE HYDROCHLORIDE
     Dosage: UNK
  25. VELETRI [Suspect]
     Active Substance: EPOPROSTENOL
     Dosage: 16 NG/KG, PER MIN
     Route: 042
  26. VELETRI [Suspect]
     Active Substance: EPOPROSTENOL
     Dosage: 42 NG/KG, PER MIN
     Route: 042

REACTIONS (46)
  - Mental status changes [Recovered/Resolved]
  - Renal impairment [Recovering/Resolving]
  - Skin culture positive [Recovered/Resolved]
  - Drug hypersensitivity [Unknown]
  - Depression [Unknown]
  - Device related infection [Recovered/Resolved]
  - Catheter site erythema [Recovered/Resolved]
  - Catheter management [Unknown]
  - Depressed level of consciousness [Recovered/Resolved]
  - Abdominal distension [Unknown]
  - Fall [Unknown]
  - Pain [Unknown]
  - Hypotension [Recovered/Resolved]
  - Condition aggravated [Unknown]
  - Pain in jaw [Unknown]
  - Somnolence [Unknown]
  - Headache [Unknown]
  - Weight decreased [Unknown]
  - Dyspnoea exertional [Unknown]
  - Pseudomonas infection [Recovered/Resolved]
  - Catheter site infection [Recovered/Resolved]
  - Oxygen consumption increased [Recovered/Resolved]
  - Confusional state [Recovered/Resolved]
  - Constipation [Unknown]
  - Peripheral swelling [Unknown]
  - Catheter culture positive [Recovered/Resolved]
  - Cardiac failure [Recovered/Resolved]
  - Accidental overdose [Recovered/Resolved]
  - Ascites [Recovered/Resolved]
  - Fluid retention [Unknown]
  - Hernia [Unknown]
  - Atrial fibrillation [Recovered/Resolved]
  - Scrotal oedema [Recovered/Resolved]
  - Cardiac operation [Unknown]
  - Diastolic dysfunction [Recovered/Resolved]
  - Hepatic cirrhosis [Unknown]
  - Diarrhoea [Unknown]
  - Dyspnoea at rest [Unknown]
  - Unevaluable event [Unknown]
  - Device dislocation [Recovered/Resolved]
  - Hyperkalaemia [Recovered/Resolved]
  - Pulmonary hypertension [Recovered/Resolved]
  - Cardiac failure chronic [Recovered/Resolved]
  - Paracentesis [Unknown]
  - Malaise [Unknown]
  - Anxiety [Unknown]

NARRATIVE: CASE EVENT DATE: 20190321
